FAERS Safety Report 8059673-7 (Version None)
Quarter: 2012Q1

REPORT INFORMATION
  Report Type: 
  Country: None (occurrence: None)
  Receive Date: 20120120
  Receipt Date: 20120112
  Transmission Date: 20120608
  Serious: Yes (Other)
  Sender: FDA-Public Use
  Company Number: PHHY2012JP003168

PATIENT
  Sex: Female

DRUGS (5)
  1. TASIGNA [Suspect]
     Indication: CHRONIC MYELOID LEUKAEMIA
     Dosage: 200 MG, DAILY
     Route: 048
     Dates: start: 20100311, end: 20100318
  2. HUMALOG [Concomitant]
     Indication: DIABETES MELLITUS
  3. LASIX [Concomitant]
     Dosage: 100 MG, UNK
     Route: 048
  4. MOTILIUM [Concomitant]
  5. TASIGNA [Suspect]
     Dosage: 300 MG, DAILY
     Dates: start: 20100319

REACTIONS (2)
  - GLYCOSYLATED HAEMOGLOBIN INCREASED [None]
  - DIABETES MELLITUS [None]
